FAERS Safety Report 4609828-6 (Version None)
Quarter: 2005Q1

REPORT INFORMATION
  Report Type: 
  Country: None (occurrence: None)
  Receive Date: 20050316
  Receipt Date: 20050302
  Transmission Date: 20050727
  Serious: Yes (Other)
  Sender: FDA-Public Use
  Company Number: 200511707US

PATIENT
  Sex: Male

DRUGS (4)
  1. AMARYL [Suspect]
     Indication: DIABETES MELLITUS
     Dates: start: 19990101, end: 20050101
  2. OXYGEN [Concomitant]
     Dosage: DOSE: UNK
  3. XOPENEX [Concomitant]
     Dosage: DOSE: UNK
  4. GLUCOPHAGE [Concomitant]
     Dosage: DOSE: UNK

REACTIONS (8)
  - COLD SWEAT [None]
  - CONDITION AGGRAVATED [None]
  - DYSPNOEA [None]
  - HOT FLUSH [None]
  - LOSS OF CONSCIOUSNESS [None]
  - SWELLING [None]
  - SYNCOPE VASOVAGAL [None]
  - TREMOR [None]
